FAERS Safety Report 4383688-3 (Version None)
Quarter: 2004Q2

REPORT INFORMATION
  Report Type: 
  Country: None (occurrence: None)
  Receive Date: 20040618
  Receipt Date: 20040607
  Transmission Date: 20050107
  Serious: Yes (Other)
  Sender: FDA-Public Use
  Company Number: 10055809-NA01-0

PATIENT
  Age: 93 Year
  Sex: Female

DRUGS (3)
  1. METRONIDAZOLE [Suspect]
     Indication: COLITIS
     Dosage: 500MG/HR X 2 Q6HR X 2 INTRAVENOUS
     Route: 042
     Dates: start: 20040605
  2. METRONIDAZOLE [Suspect]
     Indication: DIVERTICULITIS
     Dosage: 500MG/HR X 2 Q6HR X 2 INTRAVENOUS
     Route: 042
     Dates: start: 20040605
  3. LEVAQUIN [Concomitant]

REACTIONS (4)
  - INFUSION SITE SWELLING [None]
  - INJECTION SITE DISCOLOURATION [None]
  - INJECTION SITE EXTRAVASATION [None]
  - PURPURA [None]
